FAERS Safety Report 25483647 (Version 1)
Quarter: 2025Q2

REPORT INFORMATION
  Report Type: Spontaneous
  Country: US (occurrence: None)
  Receive Date: 20250625
  Receipt Date: 20250625
  Transmission Date: 20250717
  Serious: Yes (Disabling)
  Sender: FDA-CTU
  Company Number: None

PATIENT
  Age: 56 Year
  Sex: Female
  Weight: 72 kg

DRUGS (13)
  1. LEVAQUIN [Suspect]
     Active Substance: LEVOFLOXACIN
     Indication: Urinary tract infection bacterial
     Dosage: FREQUENCY : DAILY;?
     Route: 048
  2. LEVAQUIN [Suspect]
     Active Substance: LEVOFLOXACIN
     Indication: Salmonellosis
  3. VALSARTAN [Concomitant]
     Active Substance: VALSARTAN
  4. VOLTAREN [Concomitant]
     Active Substance: DICLOFENAC SODIUM
  5. LORAZEPAM [Concomitant]
     Active Substance: LORAZEPAM
  6. ZOLPIDEM [Concomitant]
     Active Substance: ZOLPIDEM TARTRATE
  7. MELOXICAM [Concomitant]
     Active Substance: MELOXICAM
  8. IBUPROFEN [Concomitant]
     Active Substance: IBUPROFEN
  9. TYLENOL [Concomitant]
     Active Substance: ACETAMINOPHEN
  10. ALIGN [Concomitant]
     Active Substance: BIFIDOBACTERIUM LONGUM SUBSP. INFANTIS
  11. D3 with K2 [Concomitant]
  12. CRANBERRY [Concomitant]
     Active Substance: CRANBERRY
  13. Vitamin C without acid [Concomitant]

REACTIONS (10)
  - Tendonitis [None]
  - Arthralgia [None]
  - Dysstasia [None]
  - Pain [None]
  - Electric shock sensation [None]
  - Arthralgia [None]
  - Arthralgia [None]
  - Joint noise [None]
  - Hypokinesia [None]
  - Tendon disorder [None]

NARRATIVE: CASE EVENT DATE: 20250301
